FAERS Safety Report 11999454 (Version 1)
Quarter: 2016Q1

REPORT INFORMATION
  Report Type: Spontaneous
  Country: US (occurrence: None)
  Receive Date: 20160203
  Receipt Date: 20160203
  Transmission Date: 20160526
  Serious: No
  Sender: FDA-Public Use
  Company Number: None

PATIENT
  Sex: Female

DRUGS (3)
  1. SYNTHROID [Suspect]
     Active Substance: LEVOTHYROXINE SODIUM
  2. ARMOUR THYROID [Suspect]
     Active Substance: THYROID, PORCINE
  3. IODINE 1,200 MCG [Suspect]
     Active Substance: IODINE

REACTIONS (5)
  - Syncope [None]
  - Drug administration error [None]
  - Drug monitoring procedure not performed [None]
  - Blood thyroid stimulating hormone decreased [None]
  - Drug prescribing error [None]
